FAERS Safety Report 24971727 (Version 2)
Quarter: 2025Q2

REPORT INFORMATION
  Report Type: Report from Study
  Country: US (occurrence: US)
  Receive Date: 20250214
  Receipt Date: 20250403
  Transmission Date: 20250716
  Serious: No
  Sender: DECIPHERA PHARMACEUTICALS
  Company Number: US-DECIPHERA PHARMACEUTICALS LLC-2025US000078

PATIENT
  Sex: Female

DRUGS (2)
  1. QINLOCK [Suspect]
     Active Substance: RIPRETINIB
     Indication: Gastrointestinal stromal tumour
     Dosage: 150 MILLIGRAM, QD
     Route: 048
     Dates: start: 20241224
  2. QINLOCK [Suspect]
     Active Substance: RIPRETINIB
     Dosage: 100 MILLIGRAM, QD
     Route: 048

REACTIONS (9)
  - Drug intolerance [Unknown]
  - Sensitive skin [Unknown]
  - Decreased appetite [Unknown]
  - Rash [Unknown]
  - Alopecia [Unknown]
  - Fatigue [Unknown]
  - Constipation [Recovering/Resolving]
  - Pruritus [Unknown]
  - Dry skin [Unknown]
